FAERS Safety Report 12015945 (Version 1)
Quarter: 2016Q1

REPORT INFORMATION
  Report Type: Spontaneous
  Country: US (occurrence: US)
  Receive Date: 20160205
  Receipt Date: 20160205
  Transmission Date: 20160526
  Serious: No
  Sender: FDA-Public Use
  Company Number: US-AMGEN-USASP2015102297

PATIENT
  Age: 57 Year
  Sex: Female

DRUGS (3)
  1. IRINOTECAN [Concomitant]
     Active Substance: IRINOTECAN
     Indication: CHOLANGIOCARCINOMA
     Dosage: UNK UNK, EVERY 2 WEEKS, ON WEDNESDAY
  2. NEULASTA [Suspect]
     Active Substance: PEGFILGRASTIM
     Indication: PROPHYLAXIS
     Dosage: UNK UNK, AFTER CHEMO, ON FRIDAY
     Route: 065
  3. 5 FU [Concomitant]
     Active Substance: FLUOROURACIL
     Indication: CHOLANGIOCARCINOMA
     Dosage: UNK UNK, EVERY 2 WEEKS, ON THURSDAY

REACTIONS (1)
  - Off label use [Unknown]
